FAERS Safety Report 7457581-3 (Version None)
Quarter: 2011Q2

REPORT INFORMATION
  Report Type: 
  Country: None (occurrence: None)
  Receive Date: 20110504
  Receipt Date: 20110421
  Transmission Date: 20111010
  Serious: No
  Sender: FDA-Public Use
  Company Number: US-B.I. PHARMACEUTICALS,INC./RIDGEFIELD-2011-BP-03032BP

PATIENT
  Sex: Female

DRUGS (3)
  1. CARDIZEM [Concomitant]
     Indication: CARDIAC DISORDER
     Dosage: 120 MG
  2. DIGOXIN [Concomitant]
     Indication: CARDIAC DISORDER
     Dosage: 125 MCG
  3. PRADAXA [Suspect]
     Indication: ATRIAL FIBRILLATION
     Dosage: 300 MG
     Route: 048
     Dates: start: 20101101

REACTIONS (5)
  - FREQUENT BOWEL MOVEMENTS [None]
  - HYPOAESTHESIA [None]
  - DIARRHOEA [None]
  - PAIN [None]
  - FLATULENCE [None]
